FAERS Safety Report 4472795-2 (Version None)
Quarter: 2004Q4

REPORT INFORMATION
  Report Type: 
  Country: None (occurrence: None)
  Receive Date: 20041012
  Receipt Date: 20041012
  Transmission Date: 20050328
  Serious: Yes (Life-Threatening, Hospitalization, Disabling)
  Sender: FDA-Public Use
  Company Number: None

PATIENT
  Age: 46 Year
  Sex: Male
  Weight: 99.7913 kg

DRUGS (1)
  1. VIOXX (-ROFEXCOXIB-)  25 MG  MERCK + CO., INC. [Suspect]
     Indication: BACK PAIN
     Dosage: 25 MG 1 PER DAY ORAL
     Route: 048
     Dates: start: 20020927, end: 20040908

REACTIONS (1)
  - MYOCARDIAL INFARCTION [None]
